FAERS Safety Report 19974230 (Version 9)
Quarter: 2024Q4

REPORT INFORMATION
  Report Type: Spontaneous
  Country: US (occurrence: US)
  Receive Date: 20211020
  Receipt Date: 20241231
  Transmission Date: 20250114
  Serious: Yes (Other)
  Sender: PFIZER
  Company Number: US-PFIZER INC-202101352546

PATIENT
  Age: 76 Year
  Sex: Female

DRUGS (4)
  1. IBRANCE [Suspect]
     Active Substance: PALBOCICLIB
     Indication: Breast cancer metastatic
     Dosage: 125 MG, CYCLIC (TAKE AT THE SAME TIME DAILY ON DAYS 1-21 OF EACH 28 DAY CYCLE)
     Route: 048
  2. IBRANCE [Suspect]
     Active Substance: PALBOCICLIB
     Dosage: 100 MG, CYCLIC (TAKE AT THE SAME TIME DAILY ON DAYS 1-21 OF EACH 28 DAY CYCLE)
     Route: 048
  3. IBRANCE [Suspect]
     Active Substance: PALBOCICLIB
     Dosage: TAKE 1 TABLET (75 MG) DAILY
     Route: 048
  4. IBRANCE [Suspect]
     Active Substance: PALBOCICLIB
     Dosage: 75 MG, CYCLIC (TAKE AT THE SAME TIME DAILY ON DAYS 1-21 OF EACH 28 DAY CYCLE)
     Route: 048

REACTIONS (5)
  - Spinal fracture [Recovering/Resolving]
  - Bronchitis [Unknown]
  - Dysphonia [Unknown]
  - Neoplasm progression [Unknown]
  - Hyperphagia [Unknown]
